FAERS Safety Report 9827747 (Version 1)
Quarter: 2014Q1

REPORT INFORMATION
  Report Type: Spontaneous
  Country: US (occurrence: US)
  Receive Date: 20140117
  Receipt Date: 20140117
  Transmission Date: 20141002
  Serious: No
  Sender: FDA-Public Use
  Company Number: US-TEVA-455120USA

PATIENT
  Age: 56 Year
  Sex: Male

DRUGS (1)
  1. QVAR [Suspect]
     Route: 055
     Dates: start: 201312

REACTIONS (2)
  - Drug ineffective [Unknown]
  - Dyspnoea [Unknown]
